FAERS Safety Report 7267807-7 (Version None)
Quarter: 2011Q1

REPORT INFORMATION
  Report Type: 
  Country: None (occurrence: None)
  Receive Date: 20110201
  Receipt Date: 20110122
  Transmission Date: 20110831
  Serious: Yes (Other)
  Sender: FDA-Public Use
  Company Number: B0674913A

PATIENT
  Age: 40 Year
  Sex: Female

DRUGS (14)
  1. ATORVASTATIN CALCIUM [Concomitant]
     Route: 048
     Dates: start: 20090511
  2. NIACIN [Concomitant]
     Route: 048
     Dates: start: 20081010
  3. OMEPRAZOLE [Concomitant]
     Route: 048
     Dates: start: 20040612
  4. RITONAVIR [Concomitant]
     Indication: HIV INFECTION
     Route: 048
     Dates: start: 20040512
  5. SYMBICORT [Concomitant]
     Indication: ASTHMA
     Route: 055
     Dates: start: 20091113
  6. RISPERIDONE [Concomitant]
     Route: 048
     Dates: start: 20091107
  7. MARAVIROC [Suspect]
     Indication: HIV INFECTION
     Dosage: 150MG TWICE PER DAY
     Route: 048
     Dates: start: 20081010
  8. RALTEGRAVIR [Concomitant]
     Indication: HIV INFECTION
     Route: 048
     Dates: start: 20080728
  9. MULTI-VITAMINS [Concomitant]
     Route: 048
     Dates: start: 20080313
  10. DARUNAVIR [Concomitant]
     Indication: HIV INFECTION
     Route: 048
     Dates: start: 20080728
  11. VALACYCLOVIR [Concomitant]
     Indication: ANTIVIRAL TREATMENT
     Route: 048
     Dates: start: 20060606
  12. BUPROPION [Concomitant]
     Indication: DEPRESSION
     Route: 048
     Dates: start: 20090908
  13. IBUPROFEN [Concomitant]
     Indication: PAIN
     Route: 048
     Dates: start: 20090908
  14. ALBUTEROL [Concomitant]
     Indication: ASTHMA
     Route: 055
     Dates: start: 20030716

REACTIONS (3)
  - VULVAL CANCER [None]
  - CERVIX CARCINOMA [None]
  - SQUAMOUS CELL CARCINOMA [None]
